FAERS Safety Report 8906856 (Version 2)
Quarter: 2014Q1

REPORT INFORMATION
  Report Type: Report from Study
  Country: CA (occurrence: CA)
  Receive Date: 20121114
  Receipt Date: 20140220
  Transmission Date: 20141002
  Serious: Yes (Hospitalization, Other)
  Sender: FDA-Public Use
  Company Number: CA-ELI_LILLY_AND_COMPANY-CA201211002033

PATIENT
  Age: 63 Year
  Sex: Female

DRUGS (15)
  1. TERIPARATIDE [Suspect]
     Indication: OSTEOPOROSIS
     Dosage: 20 UG, QD
     Route: 058
     Dates: start: 20110604, end: 20120917
  2. TERIPARATIDE [Suspect]
     Dosage: 20 UG, QD
     Route: 058
     Dates: start: 20121105
  3. METAMUCIL [Concomitant]
  4. LACTULOSE [Concomitant]
  5. CALCITONIN [Concomitant]
  6. FENTANYL [Concomitant]
  7. HYDROMORPH CONTIN [Concomitant]
  8. ESTROGEN [Concomitant]
  9. DILAUDID [Concomitant]
  10. VITAMIN D [Concomitant]
  11. CALCIUM [Concomitant]
  12. TRAZODONE [Concomitant]
  13. NORTRIPTYLINE [Concomitant]
  14. ONDANSETRON [Concomitant]
     Indication: NAUSEA
  15. GAMMA GLOBULIN [Concomitant]
     Indication: PRODUCT USED FOR UNKNOWN INDICATION
     Dosage: 50 G, OTHER
     Route: 042

REACTIONS (2)
  - Pelvic fracture [Recovered/Resolved]
  - Acetabulum fracture [Recovered/Resolved]
